FAERS Safety Report 20829267 (Version 1)
Quarter: 2022Q2

REPORT INFORMATION
  Report Type: Spontaneous
  Country: US (occurrence: US)
  Receive Date: 20220513
  Receipt Date: 20220513
  Transmission Date: 20220721
  Serious: No
  Sender: FDA-Public Use
  Company Number: US-SA-SAC20220511001816

PATIENT
  Sex: Male

DRUGS (6)
  1. AUBAGIO [Suspect]
     Active Substance: TERIFLUNOMIDE
     Indication: Multiple sclerosis
     Dosage: 14 MG, QD
     Route: 048
     Dates: start: 20211007
  2. ZINC [Concomitant]
     Active Substance: ZINC
  3. FLAXSEED [Concomitant]
     Active Substance: FLAX SEED
  4. VITAMIN D NOS [Concomitant]
     Active Substance: VITAMIN D NOS
  5. ESCITALOPRAM OXALATE [Concomitant]
     Active Substance: ESCITALOPRAM OXALATE
  6. GRAPESEED [Concomitant]

REACTIONS (2)
  - Alopecia [Unknown]
  - Diarrhoea [Unknown]
